FAERS Safety Report 17228472 (Version 1)
Quarter: 2020Q1

REPORT INFORMATION
  Report Type: Spontaneous
  Country: DE (occurrence: DE)
  Receive Date: 20200103
  Receipt Date: 20200103
  Transmission Date: 20200409
  Serious: Yes (Hospitalization, Other)
  Sender: FDA-Public Use
  Company Number: DE-TEVA-2019-DE-1160723

PATIENT
  Age: 35 Year
  Sex: Male

DRUGS (4)
  1. DEXA-GENTAMICIN AUGENSALBE (GENTAMICIN SULFATE\DEXAMETHASONE SODIUM PHOSPHATE) [Suspect]
     Active Substance: DEXAMETHASONE SODIUM PHOSPHATE\GENTAMICIN SULFATE
     Indication: EYE INFLAMMATION
  2. DOXY-M-RATIOPHARM 100 MG TABLETTEN [Suspect]
     Active Substance: DOXYCYCLINE
     Indication: EYE INFLAMMATION
  3. DOXY-M-RATIOPHARM 100 MG TABLETTEN [Suspect]
     Active Substance: DOXYCYCLINE
     Indication: BLEPHARITIS
     Dosage: 0.5 DOSAGE FORMS
     Route: 048
     Dates: start: 201911
  4. DEXA-GENTAMICIN AUGENSALBE (GENTAMICIN SULFATE\DEXAMETHASONE SODIUM PHOSPHATE) [Suspect]
     Active Substance: DEXAMETHASONE SODIUM PHOSPHATE\GENTAMICIN SULFATE
     Indication: BLEPHARITIS
     Dosage: 3X DAILY, 1 DOSAGE FORMS
     Route: 047
     Dates: start: 201911

REACTIONS (2)
  - Diplopia [Not Recovered/Not Resolved]
  - Ophthalmoplegia [Not Recovered/Not Resolved]

NARRATIVE: CASE EVENT DATE: 201912
